FAERS Safety Report 4337157-7 (Version None)
Quarter: 2004Q1

REPORT INFORMATION
  Report Type: 
  Country: None (occurrence: None)
  Receive Date: 20040329
  Receipt Date: 20040218
  Transmission Date: 20041129
  Serious: No
  Sender: FDA-Public Use
  Company Number: USA040259623

PATIENT
  Age: 7 Year
  Sex: Female
  Weight: 19 kg

DRUGS (1)
  1. STRATTERA [Suspect]
     Dosage: 60 MG IN THE MORNING
     Dates: start: 20030201

REACTIONS (2)
  - PRESCRIBED OVERDOSE [None]
  - RETCHING [None]
